FAERS Safety Report 4820534-5 (Version None)
Quarter: 2005Q4

REPORT INFORMATION
  Report Type: 
  Country: None (occurrence: None)
  Receive Date: 20051102
  Receipt Date: 20051102
  Transmission Date: 20060501
  Serious: Yes (Hospitalization)
  Sender: FDA-Public Use
  Company Number: None

PATIENT
  Age: 79 Year
  Sex: Male
  Weight: 98.3 kg

DRUGS (2)
  1. WARFARIN [Suspect]
  2. AMIODARONE HCL [Concomitant]

REACTIONS (2)
  - EPISTAXIS [None]
  - NONSPECIFIC REACTION [None]
